FAERS Safety Report 8956486 (Version 1)
Quarter: 2012Q4

REPORT INFORMATION
  Report Type: 
  Country: CH (occurrence: CH)
  Receive Date: 20121210
  Receipt Date: 20121210
  Transmission Date: 20130627
  Serious: Yes (Hospitalization)
  Sender: FDA-Public Use
  Company Number: CH-PFIZER INC-2012307105

PATIENT
  Age: 67 Year
  Sex: Male

DRUGS (11)
  1. ALDACTONE [Suspect]
     Dosage: 75 mg, 1x/day
     Route: 048
  2. ASPIRIN CARDIO [Suspect]
     Dosage: 100 mg, 1x/day
     Route: 048
     Dates: end: 20121122
  3. SIMVASTATIN [Concomitant]
     Dosage: 20 mg, 1x/day
     Route: 048
  4. BECOZYME FORTE [Concomitant]
     Dosage: 1 DF, 1x/day
     Route: 048
  5. BENERVA [Concomitant]
     Dosage: 300 mg, 1x/day
     Route: 048
  6. SEROQUEL [Concomitant]
     Dosage: 1 DF, 2x/day
  7. ACIDUM FOLICUM [Concomitant]
     Dosage: 5 mg, 1x/day
     Route: 048
  8. TRIATEC [Concomitant]
     Dosage: 1.25 mg, 1x/day
     Route: 048
     Dates: end: 20121122
  9. NEBILET [Concomitant]
     Dosage: 5 mg, 1x/day
     Route: 048
     Dates: end: 20121122
  10. TARGIN [Concomitant]
     Dosage: 5 mg / 10 mg, 2x/day
     Route: 048
  11. TOREM [Concomitant]
     Dosage: 10 mg, 1x/day
     Route: 048

REACTIONS (2)
  - Haematemesis [Recovered/Resolved]
  - Haemorrhagic anaemia [Recovering/Resolving]
